FAERS Safety Report 25906978 (Version 2)
Quarter: 2025Q4

REPORT INFORMATION
  Report Type: Report from Study
  Country: AE (occurrence: AE)
  Receive Date: 20251010
  Receipt Date: 20251024
  Transmission Date: 20260118
  Serious: Yes (Other)
  Sender: NOVARTIS
  Company Number: AE-002147023-NVSC2025AE154710

PATIENT
  Age: 45 Year
  Sex: Male

DRUGS (1)
  1. COSENTYX [Suspect]
     Active Substance: SECUKINUMAB
     Indication: Psoriasis
     Dosage: 300 MG, QMO
     Route: 058
     Dates: start: 20231030, end: 20250901

REACTIONS (2)
  - Colitis ulcerative [Recovered/Resolved]
  - Drug effect less than expected [Unknown]

NARRATIVE: CASE EVENT DATE: 20240115
